FAERS Safety Report 6147873-2 (Version None)
Quarter: 2009Q2

REPORT INFORMATION
  Report Type: 
  Country: None (occurrence: None)
  Receive Date: 20090408
  Receipt Date: 20090327
  Transmission Date: 20091009
  Serious: Yes (Death, Life-Threatening)
  Sender: FDA-Public Use
  Company Number: AR-PFIZER INC-2007044913

PATIENT

DRUGS (2)
  1. LINEZOLID [Suspect]
     Indication: PNEUMONIA
     Dosage: 600 MG, 2X/DAY
     Route: 042
     Dates: start: 20061123, end: 20061126
  2. CEFTAZIDIME [Suspect]
     Indication: PNEUMONIA
     Dosage: 2 G, 3X/DAY
     Route: 042
     Dates: start: 20061123, end: 20061126

REACTIONS (2)
  - HEPATIC FUNCTION ABNORMAL [None]
  - MULTI-ORGAN FAILURE [None]
